FAERS Safety Report 5328005-7 (Version None)
Quarter: 2007Q2

REPORT INFORMATION
  Report Type: 
  Country: None (occurrence: None)
  Receive Date: 20070517
  Receipt Date: 20070507
  Transmission Date: 20071010
  Serious: Yes (Hospitalization, Other)
  Sender: FDA-Public Use
  Company Number: DE-ABBOTT-06P-062-0330094-00

PATIENT
  Sex: Female
  Weight: 55 kg

DRUGS (20)
  1. ZEMPLAR [Suspect]
     Indication: HYPERPARATHYROIDISM SECONDARY
     Route: 042
     Dates: start: 20060213, end: 20060313
  2. ZEMPLAR [Suspect]
     Route: 042
     Dates: start: 20060314, end: 20060322
  3. ZEMPLAR [Suspect]
  4. GASTAL [Concomitant]
     Indication: HYPERPARATHYROIDISM SECONDARY
     Route: 048
  5. CALCIUM CARBONATE [Concomitant]
     Indication: HYPERPARATHYROIDISM SECONDARY
     Route: 048
  6. THEOPHYLLINE [Concomitant]
     Indication: DRUG USE FOR UNKNOWN INDICATION
     Route: 048
     Dates: start: 20040913
  7. SPIRIVA [Concomitant]
     Indication: DRUG USE FOR UNKNOWN INDICATION
     Route: 055
     Dates: start: 20040913
  8. FRAGMIN P FORTE [Concomitant]
     Indication: DRUG USE FOR UNKNOWN INDICATION
     Route: 058
     Dates: start: 20060222
  9. EPOGEN [Concomitant]
     Indication: DRUG USE FOR UNKNOWN INDICATION
  10. FERRUM [Concomitant]
     Indication: DRUG USE FOR UNKNOWN INDICATION
  11. RAMIPRIL [Concomitant]
     Indication: DRUG USE FOR UNKNOWN INDICATION
  12. THEOPHYLLINE [Concomitant]
  13. METOPROLOL SUCCINATE [Concomitant]
     Indication: DRUG USE FOR UNKNOWN INDICATION
  14. DIGITOXIN TAB [Concomitant]
     Indication: DRUG USE FOR UNKNOWN INDICATION
  15. GABAPENTIN [Concomitant]
     Indication: DRUG USE FOR UNKNOWN INDICATION
  16. CALCIUM ACETATE [Concomitant]
     Indication: DRUG USE FOR UNKNOWN INDICATION
  17. PANTOPRAZOLE SODIUM [Concomitant]
     Indication: DRUG USE FOR UNKNOWN INDICATION
  18. ACETYLCYSTEINE [Concomitant]
     Indication: DRUG USE FOR UNKNOWN INDICATION
  19. HEPARIN-FRACTION, SODIUM SALT [Concomitant]
     Indication: DRUG USE FOR UNKNOWN INDICATION
     Route: 058
  20. ACETYLSALICYLIC ACID SRT [Concomitant]
     Indication: DRUG USE FOR UNKNOWN INDICATION

REACTIONS (5)
  - CORONARY ARTERY DISEASE [None]
  - DUODENAL ULCER [None]
  - GASTROINTESTINAL HAEMORRHAGE [None]
  - PERIPHERAL ARTERIAL OCCLUSIVE DISEASE [None]
  - WOUND DEHISCENCE [None]
